FAERS Safety Report 5902114-3 (Version None)
Quarter: 2008Q3

REPORT INFORMATION
  Report Type: 
  Country: None (occurrence: None)
  Receive Date: 20080929
  Receipt Date: 20080917
  Transmission Date: 20090109
  Serious: Yes (Death)
  Sender: FDA-Public Use
  Company Number: JP-PFIZER INC-2008077521

PATIENT

DRUGS (1)
  1. REVATIO [Suspect]
     Route: 048

REACTIONS (1)
  - PULMONARY HYPERTENSION [None]
